FAERS Safety Report 9813564 (Version 1)
Quarter: 2014Q1

REPORT INFORMATION
  Report Type: Spontaneous
  Country: US (occurrence: None)
  Receive Date: 20140109
  Receipt Date: 20140109
  Transmission Date: 20141002
  Serious: Yes (Other)
  Sender: FDA-Public Use
  Company Number: 001651093A

PATIENT
  Age: 19 Year
  Sex: Female

DRUGS (2)
  1. PROACTIV+ SKIN SMOOTHING EXFOLIATOR [Suspect]
     Indication: ACNE
     Dosage: TWICE DAILY DERMAL
     Dates: start: 20131217, end: 20131218
  2. PROACTIV+ PORE TARGETING TREATMENT [Suspect]
     Indication: ACNE
     Dosage: TWICE DAILY DERMAL
     Dates: start: 20131217, end: 20131218

REACTIONS (4)
  - Pruritus [None]
  - Swelling face [None]
  - Eye swelling [None]
  - Throat irritation [None]
